FAERS Safety Report 6317691-0 (Version None)
Quarter: 2009Q3

REPORT INFORMATION
  Report Type: 
  Country: None (occurrence: None)
  Receive Date: 20090821
  Receipt Date: 20090818
  Transmission Date: 20100115
  Serious: Yes (Death)
  Sender: FDA-Public Use
  Company Number: PHHY2009JP35021

PATIENT
  Age: 80 Year
  Sex: Male

DRUGS (2)
  1. VOLTAREN [Suspect]
     Dosage: 12.5 MG, ONCE/SINGLE
     Route: 054
  2. PAZUCROSS [Concomitant]

REACTIONS (2)
  - BLOOD PRESSURE DECREASED [None]
  - SHOCK [None]
